FAERS Safety Report 10202947 (Version 2)
Quarter: 2014Q2

REPORT INFORMATION
  Report Type: Spontaneous
  Country: IE (occurrence: IE)
  Receive Date: 20140528
  Receipt Date: 20140528
  Transmission Date: 20141212
  Serious: Yes (Other)
  Sender: FDA-Public Use
  Company Number: IE-GILEAD-2006-0009538

PATIENT
  Age: 35 Year
  Sex: Male

DRUGS (1)
  1. HEPSERA [Suspect]
     Indication: CHRONIC HEPATITIS B
     Route: 065

REACTIONS (2)
  - Viral mutation identified [Unknown]
  - Drug ineffective [Unknown]
